FAERS Safety Report 20798753 (Version 1)
Quarter: 2022Q2

REPORT INFORMATION
  Report Type: Report from Study
  Country: US (occurrence: US)
  Receive Date: 20220507
  Receipt Date: 20220507
  Transmission Date: 20220721
  Serious: No
  Sender: FDA-Public Use
  Company Number: US-CELGENE-USA-20220105394

PATIENT
  Age: 80 Year
  Sex: Female
  Weight: 61.235 kg

DRUGS (1)
  1. REVLIMID [Suspect]
     Active Substance: LENALIDOMIDE
     Indication: Plasma cell myeloma
     Dosage: FREQUENCY TEXT: 1 THROUGH 21 EVERY 35 DAYS?15 MILLIGRAM
     Route: 048
     Dates: start: 20210325

REACTIONS (2)
  - Nasopharyngitis [Unknown]
  - Fatigue [Unknown]
